FAERS Safety Report 23013774 (Version 2)
Quarter: 2024Q4

REPORT INFORMATION
  Report Type: Spontaneous
  Country: US (occurrence: US)
  Receive Date: 20231001
  Receipt Date: 20241218
  Transmission Date: 20250115
  Serious: No
  Sender: SANOFI AVENTIS
  Company Number: US-SA-SAC20230927000443

PATIENT
  Age: 62 Year
  Sex: Male

DRUGS (1)
  1. DUPIXENT [Suspect]
     Active Substance: DUPILUMAB
     Indication: Asthma
     Dosage: 300 MG, QOW
     Route: 058

REACTIONS (6)
  - Spondylitis [Unknown]
  - Swelling [Unknown]
  - Musculoskeletal stiffness [Unknown]
  - Back pain [Unknown]
  - Dyspnoea [Recovered/Resolved]
  - Asthma [Unknown]
